FAERS Safety Report 15657190 (Version 3)
Quarter: 2019Q2

REPORT INFORMATION
  Report Type: Report from Study
  Country: US (occurrence: US)
  Receive Date: 20181126
  Receipt Date: 20190520
  Transmission Date: 20190711
  Serious: Yes (Death, Hospitalization)
  Sender: FDA-Public Use
  Company Number: PHHO2018US012497

PATIENT
  Age: 73 Year
  Sex: Male
  Weight: 105.3 kg

DRUGS (3)
  1. ACETAMINOPHEN. [Concomitant]
     Active Substance: ACETAMINOPHEN
     Indication: PRODUCT USED FOR UNKNOWN INDICATION
     Route: 065
  2. SUTENT [Suspect]
     Active Substance: SUNITINIB MALATE
     Indication: NEUROENDOCRINE TUMOUR
     Route: 048
  3. AFINITOR [Suspect]
     Active Substance: EVEROLIMUS
     Indication: NEUROENDOCRINE TUMOUR
     Dosage: 5 MG, QD
     Route: 048
     Dates: start: 20170115

REACTIONS (6)
  - Anaemia [Unknown]
  - Neoplasm [Fatal]
  - Plasma cell myeloma [Fatal]
  - Hypercalcaemia [Recovered/Resolved]
  - Duodenal ulcer [None]
  - Acute kidney injury [Unknown]

NARRATIVE: CASE EVENT DATE: 20170527
